FAERS Safety Report 4747658-5 (Version None)
Quarter: 2005Q3

REPORT INFORMATION
  Report Type: 
  Country: None (occurrence: None)
  Receive Date: 20050818
  Receipt Date: 20050502
  Transmission Date: 20060218
  Serious: No
  Sender: FDA-Public Use
  Company Number: US-BRISTOL-MYERS SQUIBB COMPANY-12952677

PATIENT
  Age: 39 Year
  Sex: Female
  Weight: 47 kg

DRUGS (5)
  1. TEQUIN [Suspect]
     Indication: RESPIRATORY TRACT INFECTION
     Route: 048
     Dates: start: 20050401
  2. ALCOHOL [Suspect]
  3. TOPAMAX [Concomitant]
  4. DEYSREL [Concomitant]
  5. AZMACORT [Concomitant]
     Route: 055

REACTIONS (3)
  - CONFUSIONAL STATE [None]
  - DISSOCIATION [None]
  - THINKING ABNORMAL [None]
